FAERS Safety Report 6246746-4 (Version None)
Quarter: 2009Q2

REPORT INFORMATION
  Report Type: 
  Country: None (occurrence: None)
  Receive Date: 20090626
  Receipt Date: 20090615
  Transmission Date: 20091009
  Serious: Yes (Other)
  Sender: FDA-Public Use
  Company Number: US-PFIZER INC-2009228278

PATIENT
  Sex: Female
  Weight: 79.378 kg

DRUGS (1)
  1. CHANTIX [Suspect]
     Indication: SMOKING CESSATION THERAPY
     Dosage: UNK
     Dates: start: 20090424, end: 20090516

REACTIONS (2)
  - BLINDNESS TRANSIENT [None]
  - IMPAIRED DRIVING ABILITY [None]
